FAERS Safety Report 6071395-0 (Version None)
Quarter: 2009Q1

REPORT INFORMATION
  Report Type: 
  Country: None (occurrence: None)
  Receive Date: 20090202
  Receipt Date: 20081208
  Transmission Date: 20090719
  Serious: Yes (Other)
  Sender: FDA-Public Use
  Company Number: 176459USA

PATIENT
  Age: 50 Year
  Sex: Female
  Weight: 88.905 kg

DRUGS (9)
  1. ZOLPIDEM TARTRATE [Suspect]
     Indication: INSOMNIA
     Dosage: 10 MG (10 MG, 1 IN 1 D), ORAL
     Route: 048
     Dates: start: 20080711, end: 20080711
  2. PANTOPRAZOLE [Concomitant]
  3. PAROXETINE HCL [Concomitant]
  4. LISINOPRIL [Concomitant]
  5. ALPRAZOLAM [Concomitant]
  6. MOMETASONE FUROATE [Concomitant]
  7. AMPHETAMINE AND DEXTROAMPHETAMINE SALTS [Concomitant]
  8. HYDROCODONE W/IBUPROFEN [Concomitant]
  9. PHENOXYMETHYLPENICILLIN [Concomitant]

REACTIONS (1)
  - SOMNAMBULISM [None]
